FAERS Safety Report 10896517 (Version 1)
Quarter: 2015Q1

REPORT INFORMATION
  Report Type: Spontaneous
  Country: PT (occurrence: None)
  Receive Date: 20150302
  Receipt Date: 20150302
  Transmission Date: 20150721
  Serious: Yes (Disabling)
  Sender: FDA-Public Use
  Company Number: NL01PV15_38504

PATIENT
  Age: 68 Year
  Sex: Male
  Weight: 85 kg

DRUGS (7)
  1. TANSULOSINA MEPHA (TAMSULOSIN) CAPSULE [Suspect]
     Active Substance: TAMSULOSIN
     Indication: BENIGN PROSTATIC HYPERPLASIA
     Route: 048
     Dates: start: 20150121, end: 2015
  2. INDAPAMIDA (INDAPAMIDE) [Concomitant]
  3. SIMVASTATINA (SIMVASTATINA) [Concomitant]
  4. VARFINE (WARFARIN SODIUM) [Concomitant]
     Active Substance: WARFARIN SODIUM
  5. TRIMETAZIDINA MYLAN [Concomitant]
     Active Substance: TRIMETAZIDINE
  6. DIOVAN [Concomitant]
     Active Substance: VALSARTAN
  7. PERMIXON (SERENOA REPENS EXTRACT) [Suspect]
     Active Substance: SAW PALMETTO
     Indication: BENIGN PROSTATIC HYPERPLASIA
     Dosage: DESCONHECIDO
     Route: 048
     Dates: start: 20150121, end: 2015

REACTIONS (2)
  - Peripheral swelling [None]
  - Fatigue [None]

NARRATIVE: CASE EVENT DATE: 20150121
